FAERS Safety Report 15537014 (Version 1)
Quarter: 2018Q4

REPORT INFORMATION
  Report Type: Spontaneous
  Country: HU (occurrence: HU)
  Receive Date: 20181022
  Receipt Date: 20181022
  Transmission Date: 20190205
  Serious: Yes (Death)
  Sender: FDA-Public Use
  Company Number: HU-CELGENEUS-HUN-20181005671

PATIENT
  Sex: Female

DRUGS (2)
  1. GEMCITABINE [Concomitant]
     Active Substance: GEMCITABINE\GEMCITABINE HYDROCHLORIDE
     Indication: PANCREATIC CARCINOMA METASTATIC
     Route: 065
     Dates: start: 201804
  2. ABRAXANE [Suspect]
     Active Substance: PACLITAXEL
     Indication: PANCREATIC CARCINOMA METASTATIC
     Route: 041
     Dates: start: 201804

REACTIONS (1)
  - Pancreatic carcinoma metastatic [Fatal]

NARRATIVE: CASE EVENT DATE: 20181015
